FAERS Safety Report 25481191 (Version 1)
Quarter: 2025Q2

REPORT INFORMATION
  Report Type: Spontaneous
  Country: DE (occurrence: DE)
  Receive Date: 20250626
  Receipt Date: 20250626
  Transmission Date: 20250716
  Serious: Yes (Other)
  Sender: ABBVIE
  Company Number: None

PATIENT
  Age: 29 Year
  Sex: Male
  Weight: 85 kg

DRUGS (2)
  1. CARIPRAZINE [Suspect]
     Active Substance: CARIPRAZINE
     Indication: Bipolar I disorder
     Dosage: 1.5MG DANN 3?LAST ADMIN DATE: 2025
     Route: 048
     Dates: start: 20250526
  2. CARIPRAZINE [Suspect]
     Active Substance: CARIPRAZINE
     Indication: Bipolar I disorder
     Route: 048
     Dates: start: 20250602, end: 20250603

REACTIONS (1)
  - Psychotic symptom [Recovering/Resolving]

NARRATIVE: CASE EVENT DATE: 20250602
